FAERS Safety Report 17420662 (Version 1)
Quarter: 2020Q1

REPORT INFORMATION
  Report Type: Spontaneous
  Country: DE (occurrence: DE)
  Receive Date: 20200214
  Receipt Date: 20200214
  Transmission Date: 20200409
  Serious: Yes (Other)
  Sender: FDA-Public Use
  Company Number: DE-ASTRAZENECA-2020SE20864

PATIENT
  Sex: Female

DRUGS (1)
  1. SEROQUEL [Suspect]
     Active Substance: QUETIAPINE FUMARATE
     Indication: INSOMNIA
     Route: 048
     Dates: start: 201908

REACTIONS (4)
  - Off label use [Unknown]
  - Parkinsonism [Unknown]
  - Parkinson^s disease [Unknown]
  - Back pain [Unknown]

NARRATIVE: CASE EVENT DATE: 201908
